FAERS Safety Report 9752371 (Version 2)
Quarter: 2014Q1

REPORT INFORMATION
  Report Type: Spontaneous
  Country: US (occurrence: US)
  Receive Date: 20131213
  Receipt Date: 20140205
  Transmission Date: 20141002
  Serious: No
  Sender: FDA-Public Use
  Company Number: US-PFIZER INC-2013354122

PATIENT
  Age: 64 Year
  Sex: Male

DRUGS (1)
  1. DEPO-TESTOSTERONE [Suspect]
     Dosage: 100 MG, WEEKLY
     Route: 030

REACTIONS (2)
  - Poor quality drug administered [Unknown]
  - Injection site pain [Unknown]
